FAERS Safety Report 5839571-7 (Version None)
Quarter: 2008Q3

REPORT INFORMATION
  Report Type: 
  Country: None (occurrence: None)
  Receive Date: 20080811
  Receipt Date: 20080610
  Transmission Date: 20090109
  Serious: No
  Sender: FDA-Public Use
  Company Number: A0732227A

PATIENT

DRUGS (1)
  1. TREXIMET [Suspect]
     Dosage: 1000MG PER DAY
     Route: 048

REACTIONS (2)
  - DRUG INEFFECTIVE [None]
  - OVERDOSE [None]
